FAERS Safety Report 6519863-9 (Version None)
Quarter: 2009Q4

REPORT INFORMATION
  Report Type: 
  Country: None (occurrence: None)
  Receive Date: 20091228
  Receipt Date: 20091228
  Transmission Date: 20100525
  Serious: Yes (Other)
  Sender: FDA-Public Use
  Company Number: None

PATIENT
  Age: 30 Year
  Sex: Female

DRUGS (3)
  1. CEFTRIAXONE [Suspect]
     Indication: PYELONEPHRITIS
     Dosage: 2 GRAMS IV
     Route: 042
     Dates: start: 20091201, end: 20091201
  2. PROMETHAZINE [Suspect]
     Dosage: 25MG
     Dates: start: 20091201, end: 20091201
  3. ROCEPHIN [Concomitant]

REACTIONS (2)
  - DYSPNOEA [None]
  - SWOLLEN TONGUE [None]
